FAERS Safety Report 7337412-2 (Version None)
Quarter: 2011Q1

REPORT INFORMATION
  Report Type: 
  Country: None (occurrence: None)
  Receive Date: 20110308
  Receipt Date: 20110302
  Transmission Date: 20110831
  Serious: Yes (Death, Hospitalization, Other)
  Sender: FDA-Public Use
  Company Number: FI-JNJFOC-20100800846

PATIENT
  Age: 50 Year
  Sex: Female
  Weight: 108 kg

DRUGS (6)
  1. GOLIMUMAB [Suspect]
     Indication: RHEUMATOID ARTHRITIS
     Route: 058
  2. CYSTRIN [Concomitant]
     Indication: INCONTINENCE
  3. DIFORMIN [Concomitant]
     Indication: DIABETES MELLITUS
  4. LANTUS [Concomitant]
     Indication: DIABETES MELLITUS
  5. SERTRALINE [Concomitant]
     Indication: DEPRESSION
  6. NEXIUM [Concomitant]
     Indication: GASTRITIS

REACTIONS (1)
  - PANCREATIC NEOPLASM [None]
